FAERS Safety Report 14258526 (Version 1)
Quarter: 2017Q4

REPORT INFORMATION
  Report Type: Spontaneous
  Country: US (occurrence: US)
  Receive Date: 20171207
  Receipt Date: 20171207
  Transmission Date: 20180321
  Serious: Yes (Death)
  Sender: FDA-Public Use
  Company Number: None

PATIENT
  Sex: Female
  Weight: 61.69 kg

DRUGS (11)
  1. LEVOTHYROXINE. [Concomitant]
     Active Substance: LEVOTHYROXINE
  2. LORAZEPAM. [Concomitant]
     Active Substance: LORAZEPAM
  3. METOPROLOL. [Concomitant]
     Active Substance: METOPROLOL
  4. CAPECITABINE. [Suspect]
     Active Substance: CAPECITABINE
     Route: 048
     Dates: start: 20171106, end: 20171127
  5. METFORMIN [Concomitant]
     Active Substance: METFORMIN HYDROCHLORIDE
  6. FUROSEMIDE. [Concomitant]
     Active Substance: FUROSEMIDE
  7. GABAPENTIN. [Concomitant]
     Active Substance: GABAPENTIN
  8. LISINOPRIL. [Concomitant]
     Active Substance: LISINOPRIL
  9. GLIPIZIDE. [Concomitant]
     Active Substance: GLIPIZIDE
  10. IBUPROFEN. [Concomitant]
     Active Substance: IBUPROFEN
  11. ATORVASTATIN [Concomitant]
     Active Substance: ATORVASTATIN

REACTIONS (1)
  - Death [None]
